FAERS Safety Report 9169586 (Version 1)
Quarter: 2013Q1

REPORT INFORMATION
  Report Type: Spontaneous
  Country: US (occurrence: US)
  Receive Date: 20130318
  Receipt Date: 20130318
  Transmission Date: 20140127
  Serious: No
  Sender: FDA-Public Use
  Company Number: US-009507513-1303USA007578

PATIENT
  Sex: Male

DRUGS (1)
  1. NASONEX [Suspect]
     Indication: SEASONAL ALLERGY
     Dosage: 1 DF, PRN
     Route: 045

REACTIONS (3)
  - Seasonal allergy [Unknown]
  - Drug dose omission [Unknown]
  - Product quality issue [Unknown]
